FAERS Safety Report 5280497-8 (Version None)
Quarter: 2007Q1

REPORT INFORMATION
  Report Type: 
  Country: None (occurrence: None)
  Receive Date: 20070329
  Receipt Date: 20070322
  Transmission Date: 20070707
  Serious: Yes (Hospitalization)
  Sender: FDA-Public Use
  Company Number: US-ABBOTT-07P-163-0362881-00

PATIENT
  Sex: Male
  Weight: 98.63 kg

DRUGS (2)
  1. HUMIRA [Suspect]
     Indication: RHEUMATOID ARTHRITIS
     Route: 058
     Dates: start: 20060801
  2. HUMIRA [Suspect]
     Route: 058
     Dates: start: 20060301, end: 20060801

REACTIONS (4)
  - BLOOD POTASSIUM DECREASED [None]
  - CARDIAC ARREST [None]
  - CARDIOVERSION [None]
  - IMPLANTABLE DEFIBRILLATOR INSERTION [None]
